FAERS Safety Report 5805724-7 (Version None)
Quarter: 2008Q3

REPORT INFORMATION
  Report Type: 
  Country: None (occurrence: None)
  Receive Date: 20080710
  Receipt Date: 20080710
  Transmission Date: 20090109
  Serious: Yes (Death)
  Sender: FDA-Public Use
  Company Number: None

PATIENT
  Sex: Male
  Weight: 91 kg

DRUGS (1)
  1. HEPARIN SODIUM [Suspect]
     Dosage: 5000 UNITS X1 IV
     Route: 042
     Dates: start: 20080702

REACTIONS (5)
  - BREATH SOUNDS ABNORMAL [None]
  - CARDIAC ARREST [None]
  - HYPOXIA [None]
  - PROCEDURAL COMPLICATION [None]
  - TACHYCARDIA [None]
